FAERS Safety Report 21278791 (Version 1)
Quarter: 2022Q3

REPORT INFORMATION
  Report Type: Spontaneous
  Country: US (occurrence: US)
  Receive Date: 20220901
  Receipt Date: 20220901
  Transmission Date: 20221027
  Serious: No
  Sender: FDA-Public Use
  Company Number: US-ORGANON-O2208USA000404

PATIENT
  Age: 35 Year
  Sex: Male

DRUGS (2)
  1. PREGNYL [Suspect]
     Active Substance: CHORIOGONADOTROPIN ALFA
     Indication: Testicular failure
     Dosage: INJECT 1500 UNIT UNDER THE SKIN (SUBCUTANEOUS INJECTION) EVERY MONDAY, WEDNESDAY AND FRIDAY
     Route: 030
     Dates: start: 20220520
  2. STERILE WATER [Suspect]
     Active Substance: WATER
     Indication: Testicular failure
     Dosage: INJECT 1000 UNIT UNDER THE SKIN (SUBCUTANEOUS INJECTION) EVERY MONDAY, WEDNESDAY AND FRIDAY
     Route: 030
     Dates: start: 20220520

REACTIONS (2)
  - Product use issue [Unknown]
  - Product dose omission issue [Unknown]

NARRATIVE: CASE EVENT DATE: 20220729
